FAERS Safety Report 8301684-8 (Version None)
Quarter: 2012Q2

REPORT INFORMATION
  Report Type: 
  Country: None (occurrence: None)
  Receive Date: 20120420
  Receipt Date: 20120405
  Transmission Date: 20120825
  Serious: No
  Sender: FDA-Public Use
  Company Number: US-JNJFOC-20120402936

PATIENT
  Sex: Female
  Weight: 113.4 kg

DRUGS (15)
  1. LYRICA [Concomitant]
     Indication: NEURALGIA
     Route: 065
  2. AMBIEN [Concomitant]
     Indication: SLEEP DISORDER
     Route: 065
  3. ACTOS [Concomitant]
     Indication: DIABETES MELLITUS
     Route: 065
  4. ELAVIL [Concomitant]
     Indication: NEURALGIA
     Route: 065
  5. FENTANYL-100 [Suspect]
     Indication: BACK PAIN
     Route: 062
  6. SOMA [Concomitant]
     Indication: MUSCLE DISORDER
     Route: 065
  7. SYNTHROID [Concomitant]
     Indication: THYROID DISORDER
     Route: 065
  8. DURAGESIC-100 [Suspect]
     Indication: BACK PAIN
     Route: 062
  9. VICODIN [Concomitant]
     Indication: PAIN
     Route: 065
  10. CYMBALTA [Concomitant]
     Route: 065
  11. SEROQUEL [Concomitant]
     Route: 065
  12. DURAGESIC-100 [Suspect]
     Route: 062
     Dates: start: 20040101
  13. CRESTOR [Concomitant]
     Indication: BLOOD CHOLESTEROL ABNORMAL
     Route: 065
  14. FENOFIBRATE [Concomitant]
     Indication: BLOOD TRIGLYCERIDES ABNORMAL
     Route: 065
  15. METFORMIN HCL [Concomitant]
     Indication: DIABETES MELLITUS
     Route: 065

REACTIONS (4)
  - APPLICATION SITE EROSION [None]
  - APPLICATION SITE ERYTHEMA [None]
  - SKIN LESION [None]
  - WRONG TECHNIQUE IN DRUG USAGE PROCESS [None]
